FAERS Safety Report 15385194 (Version 1)
Quarter: 2018Q3

REPORT INFORMATION
  Report Type: Spontaneous
  Country: US (occurrence: US)
  Receive Date: 20180907
  Receipt Date: 20180907
  Transmission Date: 20181010
  Serious: Yes (Hospitalization)
  Sender: FDA-Public Use
  Company Number: None

PATIENT
  Age: 42 Year
  Sex: Female
  Weight: 75.15 kg

DRUGS (3)
  1. LAMOTRIGINE. [Suspect]
     Active Substance: LAMOTRIGINE
     Indication: DEPRESSION
     Route: 048
     Dates: start: 20180220, end: 20180410
  2. VENLAFAXINE [Concomitant]
     Active Substance: VENLAFAXINE HYDROCHLORIDE
     Dates: start: 20180313, end: 20180907
  3. CLOZAPINE. [Concomitant]
     Active Substance: CLOZAPINE
     Dates: start: 20180212, end: 20180417

REACTIONS (6)
  - Rash macular [None]
  - Rash [None]
  - Drug reaction with eosinophilia and systemic symptoms [None]
  - Swelling face [None]
  - Inflammation [None]
  - Pyrexia [None]

NARRATIVE: CASE EVENT DATE: 20180410
